FAERS Safety Report 24981569 (Version 1)
Quarter: 2025Q1

REPORT INFORMATION
  Report Type: Spontaneous
  Country: US (occurrence: US)
  Receive Date: 20250218
  Receipt Date: 20250218
  Transmission Date: 20250408
  Serious: Yes (Life-Threatening, Other)
  Sender: PAREXEL
  Company Number: US-BELCHER PHARMACEUTICALS, LLC-2025US000577

PATIENT

DRUGS (2)
  1. SEMAGLUTIDE [Suspect]
     Active Substance: SEMAGLUTIDE
     Indication: Obesity
     Dosage: 0.25 MG, 1/WEEK
     Route: 058
     Dates: start: 20250126, end: 20250201
  2. SEMAGLUTIDE [Suspect]
     Active Substance: SEMAGLUTIDE
     Indication: Hypertriglyceridaemia

REACTIONS (2)
  - Anaphylactic reaction [Unknown]
  - Off label use [Unknown]

NARRATIVE: CASE EVENT DATE: 20250126
